FAERS Safety Report 21508821 (Version 7)
Quarter: 2023Q2

REPORT INFORMATION
  Report Type: Report from Study
  Country: JP (occurrence: JP)
  Receive Date: 20221026
  Receipt Date: 20230510
  Transmission Date: 20230722
  Serious: Yes (Hospitalization, Other)
  Sender: FDA-Public Use
  Company Number: JP-002147023-NVSC2022JP231031

PATIENT

DRUGS (23)
  1. RUXOLITINIB [Suspect]
     Active Substance: RUXOLITINIB
     Indication: Myelofibrosis
     Dosage: 20 MG, BID
     Route: 048
     Dates: start: 20220831, end: 20220911
  2. RUXOLITINIB [Suspect]
     Active Substance: RUXOLITINIB
     Dosage: 10 MG, BID
     Route: 048
     Dates: start: 20220831
  3. RUXOLITINIB [Suspect]
     Active Substance: RUXOLITINIB
     Dosage: 15 MG, BID
     Route: 048
     Dates: start: 20220928
  4. RUXOLITINIB [Suspect]
     Active Substance: RUXOLITINIB
     Dosage: 10 MG, BID
     Route: 048
     Dates: start: 20221109, end: 20230203
  5. NAVITOCLAX [Suspect]
     Active Substance: NAVITOCLAX
     Indication: Myelofibrosis
     Dosage: UNK
     Route: 065
     Dates: start: 20220831, end: 20221121
  6. NAVITOCLAX [Suspect]
     Active Substance: NAVITOCLAX
     Dosage: UNK
     Route: 065
     Dates: start: 20221109, end: 20230203
  7. NAVITOCLAX [Suspect]
     Active Substance: NAVITOCLAX
     Dosage: UNK
     Route: 065
     Dates: start: 20221220
  8. SAMSCA [Concomitant]
     Active Substance: TOLVAPTAN
     Indication: Portal hypertension
     Dosage: 7.5 MG, QD
     Route: 065
     Dates: start: 20220107
  9. FLUTICASONE PROPIONATE\FORMOTEROL FUMARATE [Concomitant]
     Active Substance: FLUTICASONE PROPIONATE\FORMOTEROL FUMARATE
     Indication: Asthma
     Dosage: 390 MG, BID, (AEROSOL)
     Route: 065
     Dates: start: 20210601
  10. SPIRONOLACTONE [Concomitant]
     Active Substance: SPIRONOLACTONE
     Indication: Portal hypertension
     Dosage: 50 MG, QD
     Route: 065
     Dates: start: 20210428, end: 20220908
  11. SPIRONOLACTONE [Concomitant]
     Active Substance: SPIRONOLACTONE
     Dosage: 50 MG, QD (EVERY 1 DAYS)
     Route: 065
     Dates: start: 20220909
  12. AZOSEMIDE [Concomitant]
     Active Substance: AZOSEMIDE
     Indication: Portal hypertension
     Dosage: 30 MG (EVERY 2 DAYS)
     Route: 065
     Dates: start: 20220506
  13. AZOSEMIDE [Concomitant]
     Active Substance: AZOSEMIDE
     Dosage: 30 MG, QD
     Route: 065
     Dates: start: 20221104
  14. FEBRICET [Concomitant]
     Indication: Hyperuricaemia
     Dosage: 40 MG, QD
     Route: 065
     Dates: start: 20210428
  15. RABEPRAZOLE SODIUM [Concomitant]
     Active Substance: RABEPRAZOLE SODIUM
     Indication: Gastritis prophylaxis
     Dosage: 10 MG, QD
     Route: 065
     Dates: start: 20210428
  16. FEBUXOSTAT [Concomitant]
     Active Substance: FEBUXOSTAT
     Indication: Hyperuricaemia
     Dosage: 40 MG, QD
     Route: 065
     Dates: start: 20210428, end: 20221103
  17. FEBUXOSTAT [Concomitant]
     Active Substance: FEBUXOSTAT
     Dosage: 20 MG, QD
     Route: 065
     Dates: start: 20221104
  18. CLOBETASOL PROPIONATE [Concomitant]
     Active Substance: CLOBETASOL PROPIONATE
     Indication: Dermatitis contact
     Dosage: 0.05 %, BID (1 FTU)
     Route: 065
     Dates: start: 20221029
  19. SALICYLIC ACID [Concomitant]
     Active Substance: SALICYLIC ACID
     Indication: Prophylaxis
     Dosage: 5 %, QD
     Route: 065
     Dates: start: 20221125
  20. AMLODIPINE [Concomitant]
     Active Substance: AMLODIPINE BESYLATE
     Indication: Hypertension
     Dosage: 5 MG (EVERY 1 DAYS)
     Route: 065
     Dates: start: 20221125
  21. MIYABM [Concomitant]
     Indication: Gastrointestinal disorder therapy
     Dosage: 2 DOSAGE FORM, TID
     Route: 065
     Dates: start: 20221122
  22. MAGNESIUM OXIDE [Concomitant]
     Active Substance: MAGNESIUM OXIDE
     Indication: Constipation prophylaxis
     Dosage: 330 MG, TID
     Route: 065
     Dates: start: 20221128
  23. LACTULOSE [Concomitant]
     Active Substance: LACTULOSE
     Indication: Constipation prophylaxis
     Dosage: 20 ML, TID
     Route: 065
     Dates: start: 20230113

REACTIONS (18)
  - C-reactive protein increased [Unknown]
  - COVID-19 [Unknown]
  - Corynebacterium infection [Unknown]
  - Movement disorder [Unknown]
  - Dizziness [Unknown]
  - Somnolence [Unknown]
  - Pyrexia [Recovered/Resolved]
  - Pyrexia [Unknown]
  - Pyrexia [Recovered/Resolved]
  - Hyperkalaemia [Unknown]
  - Acidosis [Unknown]
  - Constipation [Unknown]
  - Neutropenia [Unknown]
  - Renal impairment [Unknown]
  - Sepsis [Recovered/Resolved]
  - Urinary tract infection [Recovered/Resolved]
  - White blood cell count decreased [Unknown]
  - Anaemia [Recovered/Resolved]

NARRATIVE: CASE EVENT DATE: 20220907
